FAERS Safety Report 16852018 (Version 7)
Quarter: 2019Q4

REPORT INFORMATION
  Report Type: Spontaneous
  Country: US (occurrence: US)
  Receive Date: 20190925
  Receipt Date: 20191218
  Transmission Date: 20200122
  Serious: Yes (Hospitalization, Other)
  Sender: FDA-Public Use
  Company Number: US-PFIZER INC-2019415000

PATIENT
  Age: 59 Year
  Sex: Male
  Weight: 102 kg

DRUGS (5)
  1. VIAGRA [Suspect]
     Active Substance: SILDENAFIL CITRATE
     Indication: ERECTILE DYSFUNCTION
     Dosage: 50 MG, AS NEEDED
     Route: 048
  2. VIAGRA [Suspect]
     Active Substance: SILDENAFIL CITRATE
     Dosage: 50-100
  3. OXYCODONE [Concomitant]
     Active Substance: OXYCODONE
     Indication: PAIN
     Dosage: 10 MG, AS NEEDED
  4. VIAGRA [Suspect]
     Active Substance: SILDENAFIL CITRATE
     Dosage: 50 MG, 1X/DAY
     Route: 048
  5. OXYCONTIN [Concomitant]
     Active Substance: OXYCODONE HYDROCHLORIDE
     Indication: PAIN
     Dosage: 20 MG, 2X/DAY

REACTIONS (6)
  - Hip fracture [Unknown]
  - Malaise [Unknown]
  - Fall [Unknown]
  - Drug ineffective [Recovered/Resolved]
  - Pneumonia [Unknown]
  - Suicidal ideation [Recovered/Resolved]

NARRATIVE: CASE EVENT DATE: 201811
